FAERS Safety Report 7278594-0 (Version None)
Quarter: 2011Q1

REPORT INFORMATION
  Report Type: 
  Country: None (occurrence: None)
  Receive Date: 20110207
  Receipt Date: 20110202
  Transmission Date: 20110831
  Serious: Yes (Death, Other)
  Sender: FDA-Public Use
  Company Number: PHHY2011CN08106

PATIENT
  Age: 26 Year
  Sex: Female

DRUGS (2)
  1. DOTHIEPIN [Suspect]
  2. PARACETAMOL [Suspect]

REACTIONS (3)
  - DEATH [None]
  - CARDIAC ARREST [None]
  - SUICIDE ATTEMPT [None]
